FAERS Safety Report 7968724-7 (Version None)
Quarter: 2011Q4

REPORT INFORMATION
  Report Type: 
  Country: None (occurrence: None)
  Receive Date: 20111209
  Receipt Date: 20111205
  Transmission Date: 20120403
  Serious: Yes (Other)
  Sender: FDA-Public Use
  Company Number: GB-ABBOTT-11P-167-0880947-00

PATIENT
  Sex: Female

DRUGS (1)
  1. HUMIRA [Suspect]
     Indication: RHEUMATOID ARTHRITIS
     Route: 058
     Dates: start: 20081001

REACTIONS (4)
  - PNEUMONIA [None]
  - OROPHARYNGEAL PAIN [None]
  - GASTRIC INFECTION [None]
  - LOWER RESPIRATORY TRACT INFECTION [None]
